FAERS Safety Report 8018997-X (Version None)
Quarter: 2012Q1

REPORT INFORMATION
  Report Type: 
  Country: None (occurrence: None)
  Receive Date: 20120103
  Receipt Date: 20111222
  Transmission Date: 20120608
  Serious: Yes (Other)
  Sender: FDA-Public Use
  Company Number: CR-ELI_LILLY_AND_COMPANY-CR201112002337

PATIENT
  Age: 27 Year
  Sex: Female

DRUGS (2)
  1. DULOXETINE HYDROCHLORIDE [Suspect]
     Indication: MAJOR DEPRESSION
     Dosage: 60 MG, QD
     Route: 048
     Dates: start: 20101201, end: 20111015
  2. DULOXETINE HYDROCHLORIDE [Suspect]
     Dosage: 30 MG, QD
     Route: 048
     Dates: start: 20111015, end: 20111115

REACTIONS (6)
  - SYNCOPE [None]
  - HEPATOMEGALY [None]
  - HEPATITIS [None]
  - LIVER TENDERNESS [None]
  - VIRAL INFECTION [None]
  - DIARRHOEA [None]
